FAERS Safety Report 6521831-8 (Version None)
Quarter: 2009Q4

REPORT INFORMATION
  Report Type: 
  Country: None (occurrence: None)
  Receive Date: 20091222
  Receipt Date: 20091214
  Transmission Date: 20100525
  Serious: Yes (Hospitalization)
  Sender: FDA-Public Use
  Company Number: 234520J09USA

PATIENT
  Age: 63 Year
  Sex: Female
  Weight: 80 kg

DRUGS (3)
  1. REBIF [Suspect]
     Indication: MULTIPLE SCLEROSIS
     Dosage: 44 MCG,   SUBCUTANEOUS
     Route: 058
     Dates: start: 20070222, end: 20090301
  2. UNSPECIFIED BLOOD PRESSURE MEDICATION (ALL OTHER THERAPEUTIC PRODUCTS) [Concomitant]
  3. UNSPECIFIED HIGH CHOLESTEROL MEDICATION (ALL OTHER THERAPEUTIC PRODUCT [Concomitant]

REACTIONS (4)
  - CONDITION AGGRAVATED [None]
  - DEMENTIA [None]
  - MULTIPLE SCLEROSIS [None]
  - SPINAL OSTEOARTHRITIS [None]
